FAERS Safety Report 10188260 (Version 1)
Quarter: 2014Q2

REPORT INFORMATION
  Report Type: Spontaneous
  Country: US (occurrence: US)
  Receive Date: 20140522
  Receipt Date: 20140522
  Transmission Date: 20141212
  Serious: Yes (Other)
  Sender: FDA-Public Use
  Company Number: US-ASTRAZENECA-2014SE34422

PATIENT
  Age: 46 Year
  Sex: Male

DRUGS (3)
  1. BRILINTA [Suspect]
     Indication: STENT PLACEMENT
     Route: 048
     Dates: end: 20140510
  2. ZOCOR [Concomitant]
  3. ASPIRIN [Concomitant]

REACTIONS (3)
  - Thrombosis in device [Unknown]
  - Arteritis [Unknown]
  - Adverse event [Unknown]
